FAERS Safety Report 4588199-8 (Version None)
Quarter: 2005Q1

REPORT INFORMATION
  Report Type: 
  Country: None (occurrence: None)
  Receive Date: 20050221
  Receipt Date: 20050209
  Transmission Date: 20050727
  Serious: Yes (Other)
  Sender: FDA-Public Use
  Company Number: BE-GLAXOSMITHKLINE-B0372075A

PATIENT
  Sex: Male

DRUGS (4)
  1. AUGMENTIN '125' [Suspect]
     Indication: DRUG USE FOR UNKNOWN INDICATION
     Route: 065
     Dates: start: 20011001
  2. SINTROM [Concomitant]
  3. RENITEC [Concomitant]
  4. ZYLORIC [Concomitant]

REACTIONS (8)
  - ABNORMAL BEHAVIOUR [None]
  - COGNITIVE DISORDER [None]
  - CONFUSIONAL STATE [None]
  - ENCEPHALITIS [None]
  - HEADACHE [None]
  - LYMPHOCYTE COUNT INCREASED [None]
  - MENINGITIS [None]
  - TOXIC INDUCED ENCEPHALOPATHY [None]
